FAERS Safety Report 5647085-2 (Version None)
Quarter: 2008Q1

REPORT INFORMATION
  Report Type: 
  Country: None (occurrence: None)
  Receive Date: 20080228
  Receipt Date: 20080228
  Transmission Date: 20080703
  Serious: Yes (Other)
  Sender: FDA-Public Use
  Company Number: None

PATIENT
  Age: 50 Year
  Sex: Female
  Weight: 111.1313 kg

DRUGS (3)
  1. CELEXA [Suspect]
     Indication: MENOPAUSE
     Dosage: 20MG ONCE A DAY PO
     Route: 048
     Dates: start: 20050101, end: 20080301
  2. CELEXA [Suspect]
     Indication: MOOD SWINGS
     Dosage: 20MG ONCE A DAY PO
     Route: 048
     Dates: start: 20050101, end: 20080301
  3. ADVAIR  DON'T REMEMBER  BRAND NAMES [Suspect]
     Indication: ASTHMA
     Dosage: 250/50??? TWICE A DAY  INHAL
     Route: 055

REACTIONS (9)
  - ANGER [None]
  - BRONCHITIS [None]
  - CRYING [None]
  - DYSPNOEA [None]
  - DYSPNOEA EXERTIONAL [None]
  - FOOD CRAVING [None]
  - FORCED EXPIRATORY VOLUME DECREASED [None]
  - WEIGHT DECREASED [None]
  - WEIGHT INCREASED [None]
